FAERS Safety Report 7557963-5 (Version None)
Quarter: 2011Q2

REPORT INFORMATION
  Report Type: 
  Country: None (occurrence: None)
  Receive Date: 20110620
  Receipt Date: 20110615
  Transmission Date: 20111010
  Serious: Yes (Other)
  Sender: FDA-Public Use
  Company Number: A0931586A

PATIENT
  Age: 50 Year
  Sex: Female

DRUGS (1)
  1. ALLI [Suspect]
     Indication: WEIGHT LOSS DIET
     Route: 048

REACTIONS (10)
  - EXPIRED DRUG ADMINISTERED [None]
  - CONSTIPATION [None]
  - DRUG INEFFECTIVE [None]
  - HAEMATOCHEZIA [None]
  - INCREASED APPETITE [None]
  - ABNORMAL FAECES [None]
  - FAECES DISCOLOURED [None]
  - STEATORRHOEA [None]
  - DRUG ADMINISTRATION ERROR [None]
  - RECTAL DISCHARGE [None]
